FAERS Safety Report 7495796-9 (Version None)
Quarter: 2011Q2

REPORT INFORMATION
  Report Type: 
  Country: None (occurrence: None)
  Receive Date: 20110523
  Receipt Date: 20110516
  Transmission Date: 20111010
  Serious: Yes (Death, Other)
  Sender: FDA-Public Use
  Company Number: CA-ELI_LILLY_AND_COMPANY-CA201105004248

PATIENT
  Sex: Male
  Weight: 101 kg

DRUGS (15)
  1. ZYPREXA [Suspect]
     Dosage: 20 MG, EACH EVENING
  2. RAMIPRIL [Concomitant]
  3. TOPIRAMATE [Concomitant]
  4. CELEXA [Concomitant]
  5. BENZTROPINE MESYLATE [Concomitant]
  6. ZYPREXA ZYDIS [Suspect]
     Dosage: 15 MG, EACH EVENING
  7. ZYPREXA [Suspect]
     Indication: SCHIZOPHRENIA
     Dosage: 10 MG, EACH EVENING
  8. ZYPREXA [Suspect]
     Dosage: 7.5 MG, EACH EVENING
  9. LOXAPINE HCL [Concomitant]
  10. ZYPREXA ZYDIS [Suspect]
     Dosage: 10 MG, EACH EVENING
  11. ZYPREXA [Suspect]
     Dosage: 15 MG, EACH EVENING
  12. PROCYCLIDINE HYDROCHLORIDE 2MG TAB [Concomitant]
  13. ZYPREXA ZYDIS [Suspect]
     Indication: SCHIZOPHRENIA
     Dosage: 15 MG, BID
  14. ZYPREXA ZYDIS [Suspect]
     Dosage: 20 MG, EACH EVENING
  15. ZYPREXA [Suspect]
     Dosage: 2.5 MG, EACH EVENING

REACTIONS (13)
  - DIABETES MELLITUS [None]
  - PARAESTHESIA [None]
  - DYSPNOEA [None]
  - OVERDOSE [None]
  - SYNCOPE [None]
  - PAIN IN EXTREMITY [None]
  - THROMBOPHLEBITIS SUPERFICIAL [None]
  - DEATH [None]
  - POOR PERIPHERAL CIRCULATION [None]
  - WOUND HEALING NORMAL [None]
  - SUPRAVENTRICULAR TACHYCARDIA [None]
  - PALPITATIONS [None]
  - WEIGHT INCREASED [None]
